FAERS Safety Report 10548142 (Version 1)
Quarter: 2014Q4

REPORT INFORMATION
  Report Type: Spontaneous
  Country: US (occurrence: None)
  Receive Date: 20141027
  Receipt Date: 20141027
  Transmission Date: 20150529
  Serious: Yes (Other)
  Sender: FDA-Public Use
  Company Number: None

PATIENT
  Age: 61 Year
  Sex: Female

DRUGS (1)
  1. XELODA [Suspect]
     Active Substance: CAPECITABINE
     Indication: BREAST CANCER
     Dosage: 500 MG ORAL BID ORAL 047
     Route: 048
     Dates: start: 201407, end: 20140912

REACTIONS (3)
  - Erythema [None]
  - Pain in extremity [None]
  - Skin exfoliation [None]

NARRATIVE: CASE EVENT DATE: 20140912
